FAERS Safety Report 24796304 (Version 1)
Quarter: 2025Q1

REPORT INFORMATION
  Report Type: Spontaneous
  Country: CA (occurrence: CA)
  Receive Date: 20250101
  Receipt Date: 20250101
  Transmission Date: 20250409
  Serious: Yes (Death)
  Sender: ORGANON
  Company Number: CA-ORGANON-O2412CAN002852

PATIENT

DRUGS (9)
  1. EZETIMIBE [Suspect]
     Active Substance: EZETIMIBE
     Indication: Type IIa hyperlipidaemia
     Dosage: 10 MILLIGRAM, 1 EVERY 1 DAYS
     Route: 065
  2. ZOCOR [Suspect]
     Active Substance: SIMVASTATIN
     Indication: Type IIa hyperlipidaemia
     Route: 065
  3. ATORVASTATIN CALCIUM [Suspect]
     Active Substance: ATORVASTATIN CALCIUM
     Indication: Type IIa hyperlipidaemia
     Route: 065
  4. IMPLITAPIDE [Suspect]
     Active Substance: IMPLITAPIDE
     Indication: Type IIa hyperlipidaemia
     Route: 065
  5. LOMITAPIDE [Suspect]
     Active Substance: LOMITAPIDE
     Indication: Type IIa hyperlipidaemia
     Dosage: 20 MILLIGRAM, 1 EVERY 1 DAYS
     Route: 048
  6. LOVASTATIN [Suspect]
     Active Substance: LOVASTATIN
     Indication: Type IIa hyperlipidaemia
     Route: 065
  7. PROBUCOL [Suspect]
     Active Substance: PROBUCOL
     Indication: Type IIa hyperlipidaemia
     Route: 065
  8. REPATHA [Suspect]
     Active Substance: EVOLOCUMAB
     Indication: Type IIa hyperlipidaemia
     Route: 058
  9. ROSUVASTATIN [Suspect]
     Active Substance: ROSUVASTATIN
     Indication: Type IIa hyperlipidaemia
     Route: 065

REACTIONS (2)
  - Disease progression [Fatal]
  - Type IIa hyperlipidaemia [Fatal]
